FAERS Safety Report 13584402 (Version 1)
Quarter: 2017Q2

REPORT INFORMATION
  Report Type: Spontaneous
  Country: US (occurrence: US)
  Receive Date: 20170526
  Receipt Date: 20170526
  Transmission Date: 20170830
  Serious: Yes (Hospitalization)
  Sender: FDA-Public Use
  Company Number: US-BION-006334

PATIENT
  Age: 57 Year
  Sex: Male

DRUGS (15)
  1. OLANZAPINE. [Concomitant]
     Active Substance: OLANZAPINE
     Dosage: QHS
  2. SIMVASTATIN. [Concomitant]
     Active Substance: SIMVASTATIN
     Dosage: 40 MG QHS
  3. TRAZODONE [Concomitant]
     Active Substance: TRAZODONE HYDROCHLORIDE
     Dosage: QHS
  4. CLOPIDOGREL [Concomitant]
     Active Substance: CLOPIDOGREL BISULFATE
  5. NITROGLYCERIN. [Concomitant]
     Active Substance: NITROGLYCERIN
     Route: 060
  6. AMANTADINE HYDROCHLORIDE. [Suspect]
     Active Substance: AMANTADINE HYDROCHLORIDE
     Indication: TREMOR
  7. VALSARTAN. [Concomitant]
     Active Substance: VALSARTAN
  8. PALIPERIDONE/PALIPERIDONE PALMITATE [Concomitant]
  9. AMLODIPINE [Concomitant]
     Active Substance: AMLODIPINE BESYLATE
  10. OXYCODONE/OXYCODONE HYDROCHLORIDE/OXYCODONE PECTINATE/OXYCODONE TEREPHTHALATE [Concomitant]
     Dosage: BID
  11. METFORMIN [Concomitant]
     Active Substance: METFORMIN HYDROCHLORIDE
     Dosage: BID
  12. OMEPRAZOLE. [Concomitant]
     Active Substance: OMEPRAZOLE
  13. SPIRONOLACTONE. [Concomitant]
     Active Substance: SPIRONOLACTONE
  14. TIZANIDINE. [Concomitant]
     Active Substance: TIZANIDINE
     Dosage: TID
  15. LITHIUM. [Suspect]
     Active Substance: LITHIUM
     Indication: PRODUCT USED FOR UNKNOWN INDICATION
     Dosage: BID

REACTIONS (8)
  - Acute kidney injury [Unknown]
  - Withdrawal syndrome [Recovered/Resolved]
  - Catatonia [Recovered/Resolved]
  - Metabolic acidosis [Unknown]
  - Respiratory distress [Recovered/Resolved]
  - Metabolic encephalopathy [Unknown]
  - Hypoglycaemia [Unknown]
  - Neuroleptic malignant syndrome [Recovered/Resolved]
